FAERS Safety Report 6538690-X (Version None)
Quarter: 2010Q1

REPORT INFORMATION
  Report Type: 
  Country: None (occurrence: None)
  Receive Date: 20100114
  Receipt Date: 20100114
  Transmission Date: 20100710
  Serious: Yes (Hospitalization)
  Sender: FDA-Public Use
  Company Number: None

PATIENT
  Sex: Female
  Weight: 136.0791 kg

DRUGS (2)
  1. ALLOPURINOL 100MG TAB [Suspect]
     Indication: GOUT
     Dosage: ONE TABLET ONE TIME DAILY BY MOUTH
     Route: 048
     Dates: start: 20091125
  2. ALLOPURINOL 100MG TAB [Suspect]
     Indication: GOUT
     Dosage: ONE TABLET ONE TIME DAILY BY MOUTH
     Route: 048
     Dates: start: 20091126

REACTIONS (5)
  - ERYTHEMA [None]
  - PRURITUS [None]
  - RASH [None]
  - SKIN EXFOLIATION [None]
  - SWELLING [None]
